FAERS Safety Report 4376999-9 (Version None)
Quarter: 2004Q2

REPORT INFORMATION
  Report Type: 
  Country: None (occurrence: None)
  Receive Date: 20040614
  Receipt Date: 20031121
  Transmission Date: 20050107
  Serious: Yes (Hospitalization, Disabling)
  Sender: FDA-Public Use
  Company Number: US-MERCK-0311USA02531

PATIENT
  Age: 57 Year
  Sex: Female
  Weight: 76 kg

DRUGS (4)
  1. PREMPRO [Concomitant]
     Route: 065
  2. SYNTHROID [Concomitant]
     Indication: HYPOTHYROIDISM
     Route: 065
     Dates: start: 19890101
  3. VIOXX [Suspect]
     Indication: LOCALISED OSTEOARTHRITIS
     Route: 048
     Dates: start: 19990101, end: 20010101
  4. VIOXX [Suspect]
     Route: 048
     Dates: start: 19990101, end: 20010101

REACTIONS (42)
  - AMAUROSIS FUGAX [None]
  - ANXIETY [None]
  - ATRIAL FIBRILLATION [None]
  - BACK PAIN [None]
  - BONE PAIN [None]
  - BURNING SENSATION [None]
  - CEREBROVASCULAR ACCIDENT [None]
  - CHEST PAIN [None]
  - COAGULOPATHY [None]
  - CONTUSION [None]
  - CORONARY ARTERY DISEASE [None]
  - DIARRHOEA [None]
  - DIVERTICULUM [None]
  - DYSPNOEA [None]
  - EPISTAXIS [None]
  - HAEMOPTYSIS [None]
  - HAEMORRHAGE [None]
  - HEADACHE [None]
  - HYPERCHOLESTEROLAEMIA [None]
  - HYPERCHROMIC ANAEMIA [None]
  - HYPERLIPIDAEMIA [None]
  - HYPERTENSION [None]
  - IRRITABLE BOWEL SYNDROME [None]
  - JOINT SPRAIN [None]
  - MITRAL VALVE INCOMPETENCE [None]
  - MITRAL VALVE PROLAPSE [None]
  - MYOFASCITIS [None]
  - NAUSEA [None]
  - OCCULT BLOOD POSITIVE [None]
  - PAIN [None]
  - PALPITATIONS [None]
  - PHLEBITIS [None]
  - POLYP COLORECTAL [None]
  - RADICULAR PAIN [None]
  - ROAD TRAFFIC ACCIDENT [None]
  - STRESS SYMPTOMS [None]
  - SUPRAVENTRICULAR TACHYCARDIA [None]
  - THALASSAEMIA [None]
  - THROMBOSIS [None]
  - TRANSIENT ISCHAEMIC ATTACK [None]
  - VENTRICULAR TACHYCARDIA [None]
  - VOMITING [None]
